FAERS Safety Report 9049902 (Version 1)
Quarter: 2013Q1

REPORT INFORMATION
  Report Type: Spontaneous
  Country: CA (occurrence: CA)
  Receive Date: 20130205
  Receipt Date: 20130205
  Transmission Date: 20140127
  Serious: Yes (Hospitalization)
  Sender: FDA-Public Use
  Company Number: CA-AMGEN-CANSP2013006851

PATIENT
  Age: 83 Year
  Sex: Female

DRUGS (3)
  1. NEUPOGEN [Suspect]
     Indication: PROPHYLAXIS
     Dosage: 1 UNK, UNK
     Route: 058
     Dates: start: 20130124
  2. CHEMOTHERAPEUTICS [Concomitant]
     Indication: NEOPLASM MALIGNANT
     Dosage: UNK
  3. WARFARIN                           /00014802/ [Concomitant]
     Dosage: UNK

REACTIONS (4)
  - Asthenia [Recovering/Resolving]
  - Dehydration [Recovering/Resolving]
  - Decreased appetite [Unknown]
  - Lethargy [Unknown]
